FAERS Safety Report 5643084-5 (Version None)
Quarter: 2008Q1

REPORT INFORMATION
  Report Type: 
  Country: None (occurrence: None)
  Receive Date: 20080228
  Receipt Date: 20080228
  Transmission Date: 20080703
  Serious: No
  Sender: FDA-Public Use
  Company Number: PHNU2008DE00896

PATIENT
  Sex: Male

DRUGS (5)
  1. ZOMETA [Concomitant]
     Indication: PLASMACYTOMA
     Dosage: 4 MG, QMO
     Dates: start: 20040101, end: 20070101
  2. ZOMETA [Concomitant]
     Dosage: 4 MG EVERY 6 WEEKS
     Route: 042
     Dates: start: 20070101
  3. VOLTAREN [Suspect]
     Indication: BACK PAIN
     Dosage: UNK, UNK
     Dates: start: 20040901
  4. VOLTAREN [Suspect]
     Indication: BACK PAIN
     Route: 065
     Dates: start: 20070701
  5. DICLOFENAC SODIUM [Suspect]
     Indication: BACK PAIN
     Dosage: 100 TO 150 MG, PRN
     Route: 065

REACTIONS (3)
  - BACK PAIN [None]
  - FLUID RETENTION [None]
  - WEIGHT INCREASED [None]
